FAERS Safety Report 24608986 (Version 3)
Quarter: 2024Q4

REPORT INFORMATION
  Report Type: Spontaneous
  Country: US (occurrence: US)
  Receive Date: 20241112
  Receipt Date: 20241120
  Transmission Date: 20250114
  Serious: No
  Sender: PFIZER
  Company Number: US-PFIZER INC-PV202300059585

PATIENT
  Age: 57 Year
  Sex: Male

DRUGS (1)
  1. TIKOSYN [Suspect]
     Active Substance: DOFETILIDE
     Indication: Atrial fibrillation
     Dosage: TAKE 1 CAPSULE (500 MCG TOTAL) BY MOUTH 2 (TWO) TIMES A DAY
     Route: 048

REACTIONS (3)
  - Amnesia [Unknown]
  - Aphasia [Unknown]
  - Off label use [Unknown]
